FAERS Safety Report 12244128 (Version 1)
Quarter: 2016Q2

REPORT INFORMATION
  Report Type: Spontaneous
  Country: GB (occurrence: GB)
  Receive Date: 20160406
  Receipt Date: 20160406
  Transmission Date: 20160815
  Serious: Yes (Disabling)
  Sender: FDA-Public Use
  Company Number: PHHY2016GB043266

PATIENT
  Age: 75 Year
  Sex: Male
  Weight: 137 kg

DRUGS (1)
  1. AMOXICILLIN. [Suspect]
     Active Substance: AMOXICILLIN
     Indication: TOOTH DISORDER
     Dosage: 500 MG
     Route: 048
     Dates: start: 20160311, end: 20160316

REACTIONS (3)
  - Muscular weakness [Recovering/Resolving]
  - Malaise [Recovering/Resolving]
  - Wheezing [Recovering/Resolving]

NARRATIVE: CASE EVENT DATE: 20160311
